FAERS Safety Report 7731864-1 (Version None)
Quarter: 2011Q3

REPORT INFORMATION
  Report Type: 
  Country: None (occurrence: None)
  Receive Date: 20110906
  Receipt Date: 20110901
  Transmission Date: 20111222
  Serious: Yes (Hospitalization)
  Sender: FDA-Public Use
  Company Number: BR-PFIZER INC-2011128857

PATIENT
  Age: 27 Year
  Sex: Female
  Weight: 87 kg

DRUGS (4)
  1. GLIMEPIRIDE/METFORMIN HYDROCHLORIDE [Concomitant]
     Indication: DIABETES MELLITUS
     Dosage: 1 DF, 1X/DAY
     Dates: start: 20110101
  2. VARENICLINE TARTRATE [Suspect]
     Dosage: 1 MG, 2X/DAY
     Route: 048
     Dates: start: 20110101, end: 20110101
  3. VASOPRIL /BRA/ [Concomitant]
     Indication: HYPERTENSION
     Dosage: 20 MG, 2X/DAY
     Dates: start: 20110101
  4. VARENICLINE TARTRATE [Suspect]
     Indication: TOBACCO USER
     Dosage: 0.5 MG, 1X/DAY
     Route: 048
     Dates: start: 20110602, end: 20110101

REACTIONS (3)
  - BLOOD PRESSURE FLUCTUATION [None]
  - DIABETES MELLITUS INADEQUATE CONTROL [None]
  - BLOOD CHOLESTEROL INCREASED [None]
